FAERS Safety Report 23633345 (Version 1)
Quarter: 2024Q1

REPORT INFORMATION
  Report Type: Spontaneous
  Country: CA (occurrence: CA)
  Receive Date: 20240314
  Receipt Date: 20240314
  Transmission Date: 20240410
  Serious: Yes (Other)
  Sender: FDA-Public Use
  Company Number: CA-PFIZER INC-202400063151

PATIENT
  Age: 71 Year
  Sex: Female

DRUGS (8)
  1. XELJANZ [Suspect]
     Active Substance: TOFACITINIB CITRATE
     Indication: Psoriatic arthropathy
     Dosage: 5 MG, 2X/DAY
     Route: 048
     Dates: start: 20190222
  2. ACLASTA [Concomitant]
     Active Substance: ZOLEDRONIC ACID
     Dosage: 5 MG , EVERY YEAR
     Route: 042
  3. ADVIL [Concomitant]
     Active Substance: IBUPROFEN
     Indication: Headache
     Dosage: 1 DF,DOSAGE INFO NOT PROVIDED. ONGOING STATUS IS UNKNOWN.
     Route: 065
     Dates: start: 20190926
  4. ADVIL [Concomitant]
     Active Substance: IBUPROFEN
     Indication: Pain
  5. ENBREL [Concomitant]
     Active Substance: ETANERCEPT
     Dosage: 1 DF,DOSAGE INFO NOT PROVIDED. DISCONTINUED.
     Route: 065
  6. IBUPROFEN [Concomitant]
     Active Substance: IBUPROFEN
     Indication: Pain
     Dosage: 1 DF, AS NEEDED , DOSAGE INFO NOT PROVIDED. PRN
     Route: 065
  7. METHOTREXATE [Concomitant]
     Active Substance: METHOTREXATE
     Dosage: 1 DF,DOSAGE INFO NOT PROVIDED. DISCONTINUED.
     Route: 065
  8. SULFASALAZINE [Concomitant]
     Active Substance: SULFASALAZINE
     Dosage: 1 DF,DOSAGE INFO NOT PROVIDED. DISCONTINUED.
     Route: 065

REACTIONS (4)
  - Nephrolithiasis [Unknown]
  - Ureteral disorder [Not Recovered/Not Resolved]
  - Infection [Unknown]
  - Weight decreased [Unknown]

NARRATIVE: CASE EVENT DATE: 20231220
